FAERS Safety Report 6609719-5 (Version None)
Quarter: 2010Q1

REPORT INFORMATION
  Report Type: 
  Country: None (occurrence: None)
  Receive Date: 20100302
  Receipt Date: 20100221
  Transmission Date: 20100710
  Serious: Yes (Hospitalization, Other)
  Sender: FDA-Public Use
  Company Number: US-SANOFI-AVENTIS-2010SA010382

PATIENT
  Age: 73 Year
  Sex: Female

DRUGS (13)
  1. LANTUS [Suspect]
     Indication: TYPE 2 DIABETES MELLITUS
     Dosage: DOSE:20 UNIT(S)
     Route: 058
  2. SOLOSTAR [Suspect]
     Indication: TYPE 2 DIABETES MELLITUS
     Dates: start: 20100101
  3. NOVOLOG [Concomitant]
     Dosage: 6 UNITS 3 X A DAY WITH MEALS DOSE:6 UNIT(S)
     Route: 058
  4. METFORMIN HCL [Concomitant]
  5. OXYBUTYNIN CHLORIDE [Concomitant]
  6. LISINOPRIL [Concomitant]
  7. SIMVASTATIN [Concomitant]
  8. METOPROLOL TARTRATE [Concomitant]
  9. PLAVIX [Concomitant]
  10. ASPIRIN [Concomitant]
  11. NITROGLYCERIN [Concomitant]
  12. ISOSORBIDE MONONITRATE [Concomitant]
  13. EYE DROPS [Concomitant]

REACTIONS (3)
  - CORONARY ARTERIAL STENT INSERTION [None]
  - HYPERGLYCAEMIA [None]
  - HYPOGLYCAEMIC UNCONSCIOUSNESS [None]
